FAERS Safety Report 16069134 (Version 2)
Quarter: 2019Q1

REPORT INFORMATION
  Report Type: Spontaneous
  Country: US (occurrence: US)
  Receive Date: 20190313
  Receipt Date: 20190328
  Transmission Date: 20190418
  Serious: No
  Sender: FDA-Public Use
  Company Number: US-AMGEN-USASP2019037874

PATIENT
  Age: 26 Year
  Sex: Female
  Weight: 88.44 kg

DRUGS (1)
  1. ENBREL [Suspect]
     Active Substance: ETANERCEPT
     Indication: PSORIATIC ARTHROPATHY
     Dosage: 50 MILLIGRAM
     Route: 058
     Dates: start: 2019

REACTIONS (4)
  - Injection site swelling [Recovered/Resolved]
  - Injection site warmth [Unknown]
  - Injection site erythema [Recovered/Resolved]
  - Injection site pruritus [Unknown]

NARRATIVE: CASE EVENT DATE: 201903
